FAERS Safety Report 4665298-3 (Version None)
Quarter: 2005Q2

REPORT INFORMATION
  Report Type: 
  Country: None (occurrence: None)
  Receive Date: 20050517
  Receipt Date: 20050504
  Transmission Date: 20051028
  Serious: Yes (Hospitalization, Other)
  Sender: FDA-Public Use
  Company Number: 2004106748

PATIENT
  Age: 29 Year
  Sex: Male
  Weight: 122.4712 kg

DRUGS (4)
  1. NEURONTIN [Suspect]
     Indication: POST-TRAUMATIC STRESS DISORDER
     Dosage: 600 MG (300 MG, 2 IN 1 D)
     Dates: start: 20000708
  2. HALDOL [Suspect]
     Indication: ILL-DEFINED DISORDER
  3. RISPERDAL [Suspect]
     Indication: ILL-DEFINED DISORDER
     Dosage: 6 MG (3 MG, 2 IN 1 D)
  4. METFORMIN HCL [Concomitant]

REACTIONS (12)
  - ABNORMAL BEHAVIOUR [None]
  - AGITATION [None]
  - CONDITION AGGRAVATED [None]
  - DELUSION [None]
  - DEPRESSION [None]
  - DRUG INEFFECTIVE [None]
  - HOMICIDAL IDEATION [None]
  - INTENTIONAL MISUSE [None]
  - MULTIPLE DRUG OVERDOSE [None]
  - PSYCHOTIC DISORDER [None]
  - SUICIDE ATTEMPT [None]
  - TREATMENT NONCOMPLIANCE [None]
